FAERS Safety Report 9319475 (Version 1)
Quarter: 2013Q2

REPORT INFORMATION
  Report Type: Spontaneous
  Country: US (occurrence: None)
  Receive Date: 20130529
  Receipt Date: 20130529
  Transmission Date: 20140414
  Serious: No
  Sender: FDA-Public Use
  Company Number: None

PATIENT
  Age: 48 Year
  Sex: Male
  Weight: 125.5 kg

DRUGS (1)
  1. DABIGATRAN [Suspect]
     Indication: ATRIAL FIBRILLATION
     Dosage: MG, PO
     Route: 048
     Dates: start: 20130418, end: 20130502

REACTIONS (6)
  - Drug intolerance [None]
  - Dyspepsia [None]
  - Abdominal pain upper [None]
  - Diarrhoea [None]
  - Dyspepsia [None]
  - Throat irritation [None]
